FAERS Safety Report 10977459 (Version 1)
Quarter: 2015Q2

REPORT INFORMATION
  Report Type: Report from Study
  Country: US (occurrence: US)
  Receive Date: 20150402
  Receipt Date: 20150402
  Transmission Date: 20150821
  Serious: Yes (Hospitalization)
  Sender: FDA-Public Use
  Company Number: US-BIOGENIDEC-2015BI042705

PATIENT
  Age: 79 Year
  Sex: Female
  Weight: 48 kg

DRUGS (1)
  1. PLEGRIDY [Suspect]
     Active Substance: PEGINTERFERON BETA-1A
     Indication: MULTIPLE SCLEROSIS
     Route: 058
     Dates: start: 201502

REACTIONS (5)
  - Loss of consciousness [Recovered/Resolved]
  - Fatigue [Unknown]
  - Contusion [Unknown]
  - Abdominal discomfort [Unknown]
  - Head injury [Recovered/Resolved]

NARRATIVE: CASE EVENT DATE: 20150316
